FAERS Safety Report 5919521-5 (Version None)
Quarter: 2008Q4

REPORT INFORMATION
  Report Type: 
  Country: None (occurrence: None)
  Receive Date: 20081015
  Receipt Date: 20081007
  Transmission Date: 20090506
  Serious: Yes (Hospitalization)
  Sender: FDA-Public Use
  Company Number: DE-JNJFOC-20081001336

PATIENT
  Age: 31 Year
  Sex: Female

DRUGS (9)
  1. RISPERDAL [Suspect]
     Route: 048
  2. RISPERDAL [Suspect]
     Route: 048
  3. RISPERDAL [Suspect]
     Route: 048
  4. RISPERDAL [Suspect]
     Indication: SCHIZOAFFECTIVE DISORDER
     Route: 048
  5. SEROQUEL [Interacting]
     Indication: SCHIZOAFFECTIVE DISORDER
     Route: 048
  6. HALDOL [Concomitant]
     Route: 048
  7. HALDOL [Concomitant]
     Route: 048
  8. AKINETON [Concomitant]
     Route: 048
  9. AKINETON [Concomitant]
     Route: 048

REACTIONS (2)
  - DRUG INTERACTION [None]
  - LEUKOPENIA [None]
